FAERS Safety Report 20725179 (Version 1)
Quarter: 2022Q2

REPORT INFORMATION
  Report Type: Report from Study
  Country: US (occurrence: US)
  Receive Date: 20220419
  Receipt Date: 20220419
  Transmission Date: 20220721
  Serious: Yes (Other)
  Sender: FDA-Public Use
  Company Number: US-PFIZER INC-202200546413

PATIENT

DRUGS (6)
  1. DOXORUBICIN HYDROCHLORIDE [Suspect]
     Active Substance: DOXORUBICIN HYDROCHLORIDE
     Indication: Ewing^s sarcoma
     Dosage: UNK, CYCLIC (60  MG/M2 TO 75  MG/M2)
     Route: 064
  2. VINCRISTINE SULFATE [Suspect]
     Active Substance: VINCRISTINE SULFATE
     Indication: Ewing^s sarcoma
     Dosage: UNK
     Route: 064
  3. CYCLOPHOSPHAMIDE [Suspect]
     Active Substance: CYCLOPHOSPHAMIDE
     Indication: Ewing^s sarcoma
     Dosage: UNK , CYCLIC
     Route: 064
  4. ETOPOSIDE [Suspect]
     Active Substance: ETOPOSIDE
     Indication: Ewing^s sarcoma
     Dosage: UNK UNK, CYCLIC, 7.5-10 G/M2 PER CYCLE
     Route: 064
  5. ETOPOSIDE [Suspect]
     Active Substance: ETOPOSIDE
     Dosage: UNK, CYCLIC
  6. IFOSFAMIDE [Suspect]
     Active Substance: IFOSFAMIDE
     Indication: Ewing^s sarcoma
     Dosage: UNK, CYCLIC, 7.5-10 G/M2 PER CYCLE
     Route: 064

REACTIONS (3)
  - Maternal exposure during pregnancy [Unknown]
  - Foetal growth restriction [Unknown]
  - Premature baby [Unknown]
